FAERS Safety Report 14110610 (Version 1)
Quarter: 2017Q4

REPORT INFORMATION
  Report Type: Spontaneous
  Country: IT (occurrence: IT)
  Receive Date: 20171020
  Receipt Date: 20171020
  Transmission Date: 20180321
  Serious: Yes (Other)
  Sender: FDA-Public Use
  Company Number: PHHY2017IT151574

PATIENT
  Age: 59 Year
  Sex: Male

DRUGS (6)
  1. CARBOPLATINO [Concomitant]
     Active Substance: CARBOPLATIN
     Indication: BLADDER TRANSITIONAL CELL CARCINOMA
     Dosage: UNK
     Route: 042
     Dates: start: 201508
  2. GEMCITABINE [Concomitant]
     Active Substance: GEMCITABINE\GEMCITABINE HYDROCHLORIDE
     Indication: BLADDER TRANSITIONAL CELL CARCINOMA
     Route: 065
  3. ZOMETA [Suspect]
     Active Substance: ZOLEDRONIC ACID
     Indication: BLADDER TRANSITIONAL CELL CARCINOMA
     Dosage: 4 MG, UNK (POWDER AND SOLVENT)
     Route: 042
     Dates: start: 20150121, end: 20170301
  4. CARBOPLATINO [Concomitant]
     Active Substance: CARBOPLATIN
     Indication: METASTASES TO BONE
  5. GEMCITABINE [Concomitant]
     Active Substance: GEMCITABINE\GEMCITABINE HYDROCHLORIDE
     Indication: METASTASES TO BONE
     Dosage: UNK
     Route: 065
     Dates: start: 201508
  6. JAVLOR [Concomitant]
     Indication: BLADDER TRANSITIONAL CELL CARCINOMA
     Dosage: UNK
     Route: 042
     Dates: start: 20150121, end: 20170701

REACTIONS (2)
  - Fistula [Recovering/Resolving]
  - Osteonecrosis of jaw [Recovering/Resolving]

NARRATIVE: CASE EVENT DATE: 20170301
